FAERS Safety Report 15741009 (Version 2)
Quarter: 2019Q1

REPORT INFORMATION
  Report Type: Spontaneous
  Country: US (occurrence: US)
  Receive Date: 20181219
  Receipt Date: 20190208
  Transmission Date: 20190417
  Serious: Yes (Other)
  Sender: FDA-Public Use
  Company Number: US-ALEXION PHARMACEUTICALS INC.-A201816528

PATIENT
  Age: 67 Year
  Sex: Female

DRUGS (9)
  1. PREDNISONE. [Concomitant]
     Active Substance: PREDNISONE
     Indication: GRAFT VERSUS HOST DISEASE
     Dosage: 5 MG, QD
     Route: 065
  2. SOLIRIS [Suspect]
     Active Substance: ECULIZUMAB
     Indication: OFF LABEL USE
  3. ACYCLOVIR                          /00587301/ [Concomitant]
     Active Substance: ACYCLOVIR
     Indication: PROPHYLAXIS
     Dosage: UNK
     Route: 065
  4. DOXYCYCLINE. [Concomitant]
     Active Substance: DOXYCYCLINE
     Indication: INFECTIOUS COLITIS
     Dosage: UNK
     Route: 065
  5. CEPHALEXIN                         /00145501/ [Concomitant]
     Active Substance: CEPHALEXIN
     Indication: INFECTIOUS COLITIS
     Dosage: UNK
     Route: 065
  6. TACROLIMUS. [Concomitant]
     Active Substance: TACROLIMUS
     Indication: GRAFT VERSUS HOST DISEASE
     Dosage: 0.5 MG, QD
     Route: 065
  7. METRONIDAZOLE. [Concomitant]
     Active Substance: METRONIDAZOLE
     Indication: INFECTIOUS COLITIS
     Route: 065
  8. POSACONAZOLE [Concomitant]
     Active Substance: POSACONAZOLE
     Indication: PROPHYLAXIS
     Dosage: UNK
     Route: 065
  9. SOLIRIS [Suspect]
     Active Substance: ECULIZUMAB
     Indication: ESCHERICHIA TEST POSITIVE
     Dosage: UNK
     Route: 065

REACTIONS (11)
  - Off label use [Unknown]
  - Platelet count decreased [Unknown]
  - Blood creatinine increased [Unknown]
  - Nervous system disorder [Recovering/Resolving]
  - Haemoglobin decreased [Unknown]
  - Haemolysis [Unknown]
  - Blood lactate dehydrogenase increased [Unknown]
  - Hallucination, visual [Unknown]
  - Agitation [Unknown]
  - Hyperkalaemia [Unknown]
  - Fluid overload [Unknown]
